FAERS Safety Report 10397465 (Version 1)
Quarter: 2014Q1

REPORT INFORMATION
  Report Type: Spontaneous
  Country: US (occurrence: None)
  Receive Date: 20130815
  Receipt Date: 20130815
  Transmission Date: 20141002
  Serious: Yes (Hospitalization, Other)
  Sender: FDA-Public Use
  Company Number: ADR-2010-9114

PATIENT
  Age: 52 Year
  Sex: Female

DRUGS (1)
  1. LIORESAL INTRATHECAL [Suspect]
     Indication: MUSCLE SPASTICITY
     Dosage: SEE B5 MCG, DAILY, INTR
     Route: 037

REACTIONS (9)
  - Coordination abnormal [None]
  - Drug withdrawal syndrome [None]
  - Feeling abnormal [None]
  - Muscle spasticity [None]
  - Paraesthesia [None]
  - Pyrexia [None]
  - Underdose [None]
  - Pruritus [None]
  - Anxiety [None]
